FAERS Safety Report 21622230 (Version 1)
Quarter: 2022Q4

REPORT INFORMATION
  Report Type: Spontaneous
  Country: US (occurrence: None)
  Receive Date: 20221121
  Receipt Date: 20221121
  Transmission Date: 20230112
  Serious: Yes (Hospitalization, Other)
  Sender: FDA-Public Use
  Company Number: US-Hikma Pharmaceuticals USA Inc.-US-H14001-22-02907

PATIENT
  Age: 69 Year
  Sex: Male

DRUGS (3)
  1. CEFADROXIL [Suspect]
     Active Substance: CEFADROXIL
     Indication: Product used for unknown indication
     Route: 048
  2. CEFAZOLIN [Suspect]
     Active Substance: CEFAZOLIN
     Indication: Prophylaxis
     Route: 042
  3. CEFAZOLIN [Suspect]
     Active Substance: CEFAZOLIN
     Route: 042

REACTIONS (5)
  - Clostridium difficile colitis [Unknown]
  - Clostridium difficile infection [Unknown]
  - Bacteroides infection [Unknown]
  - Escherichia infection [Unknown]
  - Arthritis infective [Unknown]
